FAERS Safety Report 20315141 (Version 1)
Quarter: 2022Q1

REPORT INFORMATION
  Report Type: Spontaneous
  Country: US (occurrence: US)
  Receive Date: 20220110
  Receipt Date: 20220110
  Transmission Date: 20220424
  Serious: No
  Sender: FDA-Public Use
  Company Number: US-TELIGENT, INC-20210300023

PATIENT
  Sex: Female
  Weight: 50.3 kg

DRUGS (5)
  1. ECONAZOLE NITRATE [Suspect]
     Active Substance: ECONAZOLE NITRATE
     Indication: Fungal infection
     Dosage: USED TWO TIMES A DAY INSTEAD OF THREE TIMES A DAY AS SHE DID NOT HAVE TIME.
     Route: 061
     Dates: start: 202102, end: 20210222
  2. SIMVASTATIN [Concomitant]
     Active Substance: SIMVASTATIN
     Indication: Blood cholesterol increased
     Dosage: 5 MILLIGRAM, QD
  3. TERBINAFINE [Concomitant]
     Active Substance: TERBINAFINE
     Indication: Joint swelling
     Dosage: 5-25 MG
  4. MONTELUKAST [Concomitant]
     Active Substance: MONTELUKAST SODIUM
     Dosage: 10 MILLIGRAM
  5. CALCIUM CITRATE [Concomitant]
     Active Substance: CALCIUM CITRATE
     Indication: Osteoporosis

REACTIONS (2)
  - Burning sensation [Not Recovered/Not Resolved]
  - Intentional product use issue [Unknown]
